FAERS Safety Report 25432568 (Version 1)
Quarter: 2025Q2

REPORT INFORMATION
  Report Type: Spontaneous
  Country: US (occurrence: US)
  Receive Date: 20250613
  Receipt Date: 20250613
  Transmission Date: 20250717
  Serious: No
  Sender: Unknown Manufacturer
  Company Number: US-KINIKSA PHARMACEUTICALS LTD.-2025KPU001572

PATIENT
  Sex: Female

DRUGS (1)
  1. ARCALYST [Suspect]
     Active Substance: RILONACEPT
     Indication: Product used for unknown indication

REACTIONS (2)
  - Injection site discharge [Unknown]
  - Injection site haemorrhage [Unknown]
